FAERS Safety Report 8438070-6 (Version None)
Quarter: 2012Q2

REPORT INFORMATION
  Report Type: 
  Country: None (occurrence: None)
  Receive Date: 20120614
  Receipt Date: 20120606
  Transmission Date: 20120825
  Serious: Yes (Death)
  Sender: FDA-Public Use
  Company Number: JP-JNJFOC-20111111986

PATIENT
  Sex: Male
  Weight: 63 kg

DRUGS (25)
  1. STELARA [Suspect]
     Indication: PSORIASIS
     Route: 058
     Dates: start: 20110810, end: 20110907
  2. OXAROL [Suspect]
     Indication: PSORIASIS
     Route: 061
     Dates: start: 20111004, end: 20111102
  3. CHOLEBRINE [Concomitant]
     Indication: HYPERLIPIDAEMIA
     Route: 048
     Dates: end: 20111107
  4. INSULIN [Concomitant]
     Indication: DIABETES MELLITUS
  5. METFORMIN HCL [Concomitant]
     Indication: DIABETES MELLITUS
     Route: 048
     Dates: end: 20111121
  6. POLAPREZINC [Concomitant]
     Indication: ADVERSE EVENT
     Route: 048
     Dates: start: 20111028, end: 20111121
  7. ENSURE [Concomitant]
     Indication: ADVERSE EVENT
     Route: 048
     Dates: start: 20111108, end: 20111121
  8. LASIX [Concomitant]
     Indication: ADVERSE EVENT
     Route: 048
     Dates: start: 20111014, end: 20111121
  9. URINORM [Concomitant]
     Indication: ADVERSE EVENT
     Route: 048
     Dates: start: 20111014, end: 20111121
  10. FERROUS CITRATE [Concomitant]
     Indication: IRON DEFICIENCY ANAEMIA
     Route: 048
     Dates: start: 20111028, end: 20111121
  11. NEORAL [Suspect]
     Indication: PSORIASIS
     Route: 048
     Dates: start: 20111004, end: 20111021
  12. JUVELAN [Concomitant]
     Indication: HYPERLIPIDAEMIA
     Route: 048
     Dates: end: 20111107
  13. AMARYL [Concomitant]
     Indication: DIABETES MELLITUS
     Route: 048
     Dates: end: 20111121
  14. NERISONA [Concomitant]
     Indication: PSORIASIS
     Route: 061
     Dates: start: 20111004, end: 20111102
  15. LEVOFLOXACIN [Concomitant]
     Route: 048
     Dates: start: 20111108, end: 20111110
  16. RHEUMATREX [Concomitant]
     Route: 048
     Dates: start: 20111021, end: 20111029
  17. ALLEGRA [Concomitant]
     Indication: PRURITUS
     Route: 048
     Dates: start: 20111004, end: 20111107
  18. DOVONEX [Concomitant]
     Indication: PSORIASIS
     Route: 061
     Dates: end: 20111003
  19. INSULIN GLARGINE [Concomitant]
     Indication: DIABETES MELLITUS
     Route: 058
     Dates: end: 20111121
  20. LOXONIN [Concomitant]
     Indication: ARTHRALGIA
     Route: 048
     Dates: start: 20111004, end: 20111014
  21. VITAMEDIN [Concomitant]
     Indication: PERIPHERAL VASCULAR DISORDER
     Route: 048
     Dates: start: 20111021, end: 20111121
  22. LEVOFLOXACIN [Concomitant]
     Indication: ADVERSE EVENT
     Route: 047
     Dates: start: 20111028, end: 20111121
  23. LANSOPRAZOLE [Concomitant]
     Indication: GASTRITIS
     Route: 048
     Dates: start: 20111108, end: 20111121
  24. NEORAL [Suspect]
     Route: 048
     Dates: end: 20110905
  25. REBAMIPIDE [Concomitant]
     Indication: GASTRITIS
     Route: 048
     Dates: end: 20111107

REACTIONS (11)
  - MULTI-ORGAN FAILURE [None]
  - BRONCHITIS [None]
  - INTERSTITIAL LUNG DISEASE [None]
  - RENAL FAILURE [None]
  - HYPERURICAEMIA [None]
  - OEDEMA PERIPHERAL [None]
  - CONJUNCTIVITIS [None]
  - MALNUTRITION [None]
  - HYPOGLYCAEMIA [None]
  - DYSGEUSIA [None]
  - DRUG INEFFECTIVE [None]
